FAERS Safety Report 5293598-5 (Version None)
Quarter: 2007Q2

REPORT INFORMATION
  Report Type: 
  Country: None (occurrence: None)
  Receive Date: 20070405
  Receipt Date: 20070326
  Transmission Date: 20071010
  Serious: Yes (Hospitalization)
  Sender: FDA-Public Use
  Company Number: 6030943

PATIENT
  Age: 45 Year
  Sex: Female

DRUGS (2)
  1. LEVOTHYROXINE SODIUM [Suspect]
     Indication: DRUG USE FOR UNKNOWN INDICATION
     Dosage: 75 MCG (75 MCG, 1 D); ORAL
     Route: 048
     Dates: start: 20070201, end: 20070215
  2. NEO MERCAZOLE (20 MG, TABLET) (CARBIMAZOLE) [Suspect]
     Indication: THYROID DISORDER
     Dosage: 40 MG (40 MG, 1 WK); ORAL
     Route: 048
     Dates: start: 20070110

REACTIONS (3)
  - AGRANULOCYTOSIS [None]
  - ASPIRATION BONE MARROW ABNORMAL [None]
  - FEBRILE NEUTROPENIA [None]
